FAERS Safety Report 8350766-3 (Version None)
Quarter: 2012Q2

REPORT INFORMATION
  Report Type: 
  Country: None (occurrence: None)
  Receive Date: 20120510
  Receipt Date: 20120503
  Transmission Date: 20120825
  Serious: Yes (Hospitalization, Congenital Anomaly)
  Sender: FDA-Public Use
  Company Number: US-GLAXOSMITHKLINE-A0976994A

PATIENT
  Sex: Male
  Weight: 3.2 kg

DRUGS (5)
  1. CARBAMAZEPINE [Concomitant]
     Dates: end: 20010101
  2. PAXIL [Suspect]
     Indication: DEPRESSION
     Dosage: 20MG PER DAY
     Route: 064
     Dates: start: 20010719
  3. MULTI-VITAMINS [Concomitant]
  4. CELEXA [Concomitant]
     Dates: start: 20010905
  5. IRON [Concomitant]

REACTIONS (2)
  - FOETAL EXPOSURE DURING PREGNANCY [None]
  - TALIPES [None]
